FAERS Safety Report 10064594 (Version 1)
Quarter: 2014Q2

REPORT INFORMATION
  Report Type: Spontaneous
  Country: US (occurrence: None)
  Receive Date: 20140407
  Receipt Date: 20140407
  Transmission Date: 20141212
  Serious: Yes (Disabling, Other)
  Sender: FDA-Public Use
  Company Number: None

PATIENT
  Age: 52 Year
  Sex: Female
  Weight: 54.43 kg

DRUGS (1)
  1. SUMAVEL DOSEPRO [Suspect]
     Indication: MIGRAINE
     Dosage: NEEDLE FREE DELIVERY, FOUR TIMES DAILY, INTO THE ABDOMEN
     Dates: start: 20140328

REACTIONS (12)
  - Injection site urticaria [None]
  - Injection site oedema [None]
  - Injection site haemorrhage [None]
  - VIIth nerve paralysis [None]
  - Neuralgia [None]
  - Pain [None]
  - Pain [None]
  - Neck pain [None]
  - Ear pain [None]
  - Musculoskeletal pain [None]
  - Headache [None]
  - Pain in jaw [None]
